FAERS Safety Report 21910125 (Version 1)
Quarter: 2023Q1

REPORT INFORMATION
  Report Type: Spontaneous
  Country: US (occurrence: US)
  Receive Date: 20230125
  Receipt Date: 20230125
  Transmission Date: 20230418
  Serious: No
  Sender: FDA-Public Use
  Company Number: US-ALLERGAN-2201867US

PATIENT
  Age: 8 Decade
  Sex: Female

DRUGS (1)
  1. BOTOX [Suspect]
     Active Substance: ONABOTULINUMTOXINA
     Indication: Product used for unknown indication
     Dosage: UNK, SINGLE
     Dates: start: 20211231, end: 20211231

REACTIONS (4)
  - Asthenia [Unknown]
  - Loss of personal independence in daily activities [Unknown]
  - Neurological symptom [Unknown]
  - Injection site muscle weakness [Unknown]
